FAERS Safety Report 20891006 (Version 1)
Quarter: 2022Q2

REPORT INFORMATION
  Report Type: Spontaneous
  Country: IN (occurrence: IN)
  Receive Date: 20220530
  Receipt Date: 20220530
  Transmission Date: 20220721
  Serious: Yes (Other)
  Sender: FDA-Public Use
  Company Number: IN-MLMSERVICE-20220211-3370340-1

PATIENT

DRUGS (7)
  1. OXALIPLATIN [Suspect]
     Active Substance: OXALIPLATIN
     Indication: Rectal adenocarcinoma
     Dosage: 130 MILLIGRAM/SQ. METER, (180 MG) TO BE ADMINISTERED ON DAY 1 AS A 3-H INFUSION
  2. OXALIPLATIN [Suspect]
     Active Substance: OXALIPLATIN
     Dosage: 104 MILLIGRAM/SQ. METER (SECOND AND THIRD CYCLES)
  3. OXALIPLATIN [Suspect]
     Active Substance: OXALIPLATIN
     Dosage: 85 MILLIGRAM/SQ. METER (140MG, ADMINISTERED AS A 6H INFUSION OF 21 DAY CYCLE)
  4. CAPECITABINE [Suspect]
     Active Substance: CAPECITABINE
     Indication: Rectal adenocarcinoma
     Dosage: 2000 MILLIGRAM/SQ. METER, PER DAY IN TWO DIVIDED DOSES FOR 14 DAYS OF A 21-DAY CYCLE
     Route: 065
  5. GRANISETRON [Concomitant]
     Active Substance: GRANISETRON
     Indication: Prophylaxis of nausea and vomiting
     Dosage: 1 MILLIGRAM, TOTAL
     Route: 040
  6. PANTOPRAZOLE [Concomitant]
     Active Substance: PANTOPRAZOLE
     Indication: Prophylaxis
     Dosage: 40 MILLIGRAM, TOTAL
     Route: 040
  7. DEXAMETHASONE [Concomitant]
     Active Substance: DEXAMETHASONE
     Indication: Prophylaxis of nausea and vomiting
     Dosage: 8 MILLIGRAM, TOTAL
     Route: 040

REACTIONS (11)
  - Chemical burns of eye [Unknown]
  - Choking [Recovered/Resolved]
  - Pain in jaw [Recovered/Resolved]
  - Dysaesthesia pharynx [Recovered/Resolved]
  - Dysarthria [Recovered/Resolved]
  - Paraesthesia [Unknown]
  - Haemoglobin decreased [Recovered/Resolved]
  - Blood albumin decreased [Recovered/Resolved]
  - Dizziness [Unknown]
  - Headache [Unknown]
  - Nausea [Unknown]
